FAERS Safety Report 15675741 (Version 1)
Quarter: 2018Q4

REPORT INFORMATION
  Report Type: Spontaneous
  Country: US (occurrence: US)
  Receive Date: 20181129
  Receipt Date: 20181129
  Transmission Date: 20190205
  Serious: Yes (Death, Life-Threatening, Hospitalization)
  Sender: FDA-Public Use
  Company Number: None

PATIENT
  Sex: Male
  Weight: 94.5 kg

DRUGS (1)
  1. LAMOTRIGINE 25 MG TABLETS [Suspect]
     Active Substance: LAMOTRIGINE
     Indication: BIPOLAR I DISORDER
     Dosage: ?          OTHER FREQUENCY:1 FOR 14 DAYS +;?
     Route: 048
     Dates: start: 20180915, end: 20180930

REACTIONS (7)
  - Pyrexia [None]
  - Haemophagocytic lymphohistiocytosis [None]
  - Cognitive disorder [None]
  - Dehydration [None]
  - Fatigue [None]
  - Micturition frequency decreased [None]
  - Lethargy [None]
